FAERS Safety Report 5362259-6 (Version None)
Quarter: 2007Q2

REPORT INFORMATION
  Report Type: 
  Country: None (occurrence: None)
  Receive Date: 20070619
  Receipt Date: 20070608
  Transmission Date: 20071010
  Serious: Yes (Other)
  Sender: FDA-Public Use
  Company Number: B0475581A

PATIENT
  Age: 48 Year
  Sex: Female

DRUGS (1)
  1. NIQUITIN [Suspect]
     Indication: SMOKING CESSATION THERAPY
     Route: 062
     Dates: start: 20070515, end: 20070515

REACTIONS (1)
  - CONTUSION [None]
